FAERS Safety Report 8034510-5 (Version None)
Quarter: 2012Q1

REPORT INFORMATION
  Report Type: 
  Country: None (occurrence: None)
  Receive Date: 20120110
  Receipt Date: 20111228
  Transmission Date: 20120608
  Serious: Yes (Other)
  Sender: FDA-Public Use
  Company Number: JP-PFIZER INC-2012005582

PATIENT
  Age: 74 Year
  Sex: Female

DRUGS (8)
  1. PRORENAL [Concomitant]
  2. ACTONEL [Concomitant]
  3. CELECOXIB [Suspect]
     Route: 048
  4. FAMOTIDINE [Concomitant]
  5. BAKTAR [Concomitant]
  6. PURSENNID [Concomitant]
  7. PREDNISOLONE [Concomitant]
  8. EDIROL [Concomitant]

REACTIONS (2)
  - ABASIA [None]
  - ARTHRALGIA [None]
